FAERS Safety Report 5330542-6 (Version None)
Quarter: 2007Q2

REPORT INFORMATION
  Report Type: 
  Country: None (occurrence: None)
  Receive Date: 20070521
  Receipt Date: 20070511
  Transmission Date: 20071010
  Serious: Yes (Hospitalization)
  Sender: FDA-Public Use
  Company Number: AU-PFIZER INC-2007039000

PATIENT
  Age: 63 Year
  Sex: Female

DRUGS (6)
  1. LIPITOR [Suspect]
  2. DIABEX [Concomitant]
  3. AMPRACE [Concomitant]
  4. LEVOTHYROXINE SODIUM [Concomitant]
  5. PREDNISOLONE [Concomitant]
     Indication: MYALGIA
  6. FISH OIL [Concomitant]

REACTIONS (3)
  - FALL [None]
  - MUSCLE INJURY [None]
  - MYALGIA [None]
